FAERS Safety Report 6781209-9 (Version None)
Quarter: 2010Q2

REPORT INFORMATION
  Report Type: 
  Country: None (occurrence: None)
  Receive Date: 20100621
  Receipt Date: 20100531
  Transmission Date: 20101027
  Serious: Yes (Other)
  Sender: FDA-Public Use
  Company Number: BR-PFIZER INC-2010068019

PATIENT
  Sex: Male

DRUGS (2)
  1. ZYVOX [Suspect]
  2. TRAMAL [Suspect]

REACTIONS (3)
  - ALTERED STATE OF CONSCIOUSNESS [None]
  - DIPLOPIA [None]
  - IRRITABILITY [None]
